FAERS Safety Report 8255278-3 (Version None)
Quarter: 2012Q2

REPORT INFORMATION
  Report Type: 
  Country: None (occurrence: None)
  Receive Date: 20120403
  Receipt Date: 20120328
  Transmission Date: 20120825
  Serious: Yes (Other)
  Sender: FDA-Public Use
  Company Number: JP-SANOFI-AVENTIS-2012SA005881

PATIENT
  Age: 50 Year
  Sex: Male

DRUGS (2)
  1. LANTUS [Suspect]
     Dosage: DAILY DOSE- 20
     Route: 065
     Dates: start: 20120101, end: 20120201
  2. SOLOSTAR [Suspect]
     Indication: DEVICE THERAPY
     Dates: start: 20120101, end: 20120201

REACTIONS (3)
  - DRUG INEFFECTIVE [None]
  - URINE KETONE BODY PRESENT [None]
  - DIABETIC KETOACIDOSIS [None]
